FAERS Safety Report 9844883 (Version 1)
Quarter: 2014Q1

REPORT INFORMATION
  Report Type: Spontaneous
  Country: GR (occurrence: None)
  Receive Date: 20140122
  Receipt Date: 20140122
  Transmission Date: 20141002
  Serious: Yes (Hospitalization)
  Sender: FDA-Public Use
  Company Number: 7262237

PATIENT
  Age: 49 Year
  Sex: Female

DRUGS (3)
  1. LEVOTHYROXINE [Suspect]
     Indication: HYPOCALCAEMIA
  2. CALCIUM CARBONATE [Suspect]
     Indication: HYPOCALCAEMIA
  3. ALFACALCIDOL [Suspect]
     Indication: HYPOCALCAEMIA

REACTIONS (14)
  - Milk-alkali syndrome [None]
  - Pneumonia [None]
  - Dehydration [None]
  - Somnolence [None]
  - Slow speech [None]
  - Pancreatitis acute [None]
  - Renal failure acute [None]
  - Hypercalcaemia [None]
  - Haemodialysis [None]
  - Pneumothorax traumatic [None]
  - Ascites [None]
  - Pleural effusion [None]
  - Hypophagia [None]
  - Fluid intake reduced [None]
